FAERS Safety Report 9940601 (Version 2)
Quarter: 2014Q1

REPORT INFORMATION
  Report Type: Spontaneous
  Country: JP (occurrence: JP)
  Receive Date: 20140303
  Receipt Date: 20140318
  Transmission Date: 20141002
  Serious: Yes (Other)
  Sender: FDA-Public Use
  Company Number: JP-PFIZER INC-2014056041

PATIENT
  Age: 42 Year
  Sex: Male
  Weight: 61.4 kg

DRUGS (4)
  1. METHYLPREDNISOLONE [Suspect]
     Dosage: 500 MG, DAILY
  2. PREDNISOLONE [Suspect]
     Dosage: 60 MG, DAILY
  3. PREDNISOLONE [Suspect]
     Dosage: 40 MG, DAILY
  4. PREDNISOLONE [Suspect]
     Dosage: 15 MG, DAILY

REACTIONS (1)
  - Nocardiosis [Recovering/Resolving]
